FAERS Safety Report 25119191 (Version 1)
Quarter: 2025Q1

REPORT INFORMATION
  Report Type: Spontaneous
  Country: US (occurrence: US)
  Receive Date: 20250325
  Receipt Date: 20250325
  Transmission Date: 20250408
  Serious: No
  Sender: SANOFI AVENTIS
  Company Number: US-SA-2025SA085582

PATIENT
  Age: 61 Year
  Sex: Female

DRUGS (13)
  1. DUPIXENT [Suspect]
     Active Substance: DUPILUMAB
     Indication: Asthma
     Route: 058
     Dates: start: 20240703
  2. CLARITHROMYCIN [Concomitant]
     Active Substance: CLARITHROMYCIN
  3. MELATONIN [Concomitant]
     Active Substance: MELATONIN
  4. PRAVASTATIN [Concomitant]
     Active Substance: PRAVASTATIN
  5. BUDESONIDE [Concomitant]
     Active Substance: BUDESONIDE
  6. LOSARTAN [Concomitant]
     Active Substance: LOSARTAN
  7. FASENRA [Concomitant]
     Active Substance: BENRALIZUMAB
  8. NOVOLOG [Concomitant]
     Active Substance: INSULIN ASPART
  9. MONTELUKAST [Concomitant]
     Active Substance: MONTELUKAST
  10. ALBUTEROL [Concomitant]
     Active Substance: ALBUTEROL
  11. AMLODIPINE [Concomitant]
     Active Substance: AMLODIPINE BESYLATE
  12. FLUTICASONE [Concomitant]
     Active Substance: FLUTICASONE
  13. CALCIUM [Concomitant]
     Active Substance: CALCIUM

REACTIONS (3)
  - Headache [Unknown]
  - Nausea [Unknown]
  - Nasal dryness [Unknown]

NARRATIVE: CASE EVENT DATE: 20240701
